FAERS Safety Report 16823184 (Version 1)
Quarter: 2019Q3

REPORT INFORMATION
  Report Type: Spontaneous
  Country: GB (occurrence: GB)
  Receive Date: 20190918
  Receipt Date: 20190918
  Transmission Date: 20191005
  Serious: Yes (Other)
  Sender: FDA-Public Use
  Company Number: GB-MYLANLABS-2019M1086168

PATIENT
  Age: 78 Year
  Sex: Male
  Weight: 106 kg

DRUGS (6)
  1. OMEPRAZOLE. [Suspect]
     Active Substance: OMEPRAZOLE
     Indication: PRODUCT USED FOR UNKNOWN INDICATION
     Dosage: 20 MILLIGRAM, QD
     Dates: start: 20190326
  2. NAPROXEN. [Concomitant]
     Active Substance: NAPROXEN
     Dosage: WITH FOOD
     Dates: start: 20190326
  3. NAPROXEN. [Concomitant]
     Active Substance: NAPROXEN
     Dosage: 75 MILLIGRAM, QD (WITH FOOD)
  4. COCODAMOL [Concomitant]
     Active Substance: ACETAMINOPHEN\CODEINE PHOSPHATE
     Dosage: TAKE ONE OR TWO 4 TIMES/DAY
     Dates: start: 20190329
  5. OMEPRAZOLE. [Suspect]
     Active Substance: OMEPRAZOLE
     Dosage: 1 DOSAGE FORM, QD
     Dates: start: 20190326
  6. IBUPROFEN. [Concomitant]
     Active Substance: IBUPROFEN
     Dosage: 1 DOSAGE FORM,APPLY 3-4 TIMES/DAY
     Dates: start: 20190329

REACTIONS (2)
  - Rash [Recovered/Resolved]
  - Wheezing [Recovered/Resolved]

NARRATIVE: CASE EVENT DATE: 20190329
